FAERS Safety Report 18372898 (Version 1)
Quarter: 2020Q4

REPORT INFORMATION
  Report Type: Spontaneous
  Country: TN (occurrence: TN)
  Receive Date: 20201012
  Receipt Date: 20201012
  Transmission Date: 20210114
  Serious: Yes (Other)
  Sender: FDA-Public Use
  Company Number: TN-PFIZER INC-2020344159

PATIENT
  Age: 23 Year
  Sex: Male

DRUGS (2)
  1. ECALTA [Suspect]
     Active Substance: ANIDULAFUNGIN
     Indication: CANDIDA INFECTION
     Dosage: 200 MG (200MG THE FIRST DAY )
     Dates: start: 20200803
  2. ECALTA [Suspect]
     Active Substance: ANIDULAFUNGIN
     Dosage: 100 MG, DAILY (100MG / D MAINTAINED FOR 36 DAYS)
     Dates: start: 20200804, end: 2020

REACTIONS (5)
  - Haemophagocytic lymphohistiocytosis [Not Recovered/Not Resolved]
  - Drug ineffective [Unknown]
  - Product use issue [Unknown]
  - Pancytopenia [Not Recovered/Not Resolved]
  - Off label use [Unknown]

NARRATIVE: CASE EVENT DATE: 2020
